FAERS Safety Report 8492341-6 (Version None)
Quarter: 2012Q3

REPORT INFORMATION
  Report Type: 
  Country: None (occurrence: None)
  Receive Date: 20120706
  Receipt Date: 20120628
  Transmission Date: 20120928
  Serious: Yes (Death)
  Sender: FDA-Public Use
  Company Number: US-ROCHE-1072436

PATIENT
  Age: 30 Year
  Sex: Female

DRUGS (1)
  1. AVASTIN [Suspect]
     Indication: PRODUCT USED FOR UNKNOWN INDICATION

REACTIONS (3)
  - DRUG INEFFECTIVE [None]
  - PRODUCT QUALITY ISSUE [None]
  - DEATH [None]
